FAERS Safety Report 5967456-4 (Version None)
Quarter: 2008Q4

REPORT INFORMATION
  Report Type: 
  Country: None (occurrence: None)
  Receive Date: 20081125
  Receipt Date: 20081120
  Transmission Date: 20090506
  Serious: Yes (Other)
  Sender: FDA-Public Use
  Company Number: US-PFIZER INC-2008098732

PATIENT
  Age: 46 Year
  Sex: Male
  Weight: 100 kg

DRUGS (5)
  1. LYRICA [Suspect]
     Indication: NERVE INJURY
     Dates: start: 20060301, end: 20080101
  2. DARVON-N [Suspect]
     Indication: PAIN
     Dates: start: 20060301, end: 20061101
  3. IBUPROFEN TABLETS [Concomitant]
  4. MELOXICAM [Concomitant]
  5. GABAPENTIN [Concomitant]

REACTIONS (2)
  - LOSS OF CONSCIOUSNESS [None]
  - PSYCHOTIC DISORDER [None]
